FAERS Safety Report 17279208 (Version 1)
Quarter: 2020Q1

REPORT INFORMATION
  Report Type: Spontaneous
  Country: CN (occurrence: CN)
  Receive Date: 20200116
  Receipt Date: 20200116
  Transmission Date: 20200409
  Serious: Yes (Other)
  Sender: FDA-Public Use
  Company Number: CN-SA-2020SA007933

PATIENT
  Age: 79 Year
  Sex: Male

DRUGS (3)
  1. INSULIN LISPRO [Suspect]
     Active Substance: INSULIN LISPRO
     Indication: RENAL FAILURE
     Dosage: UNK
     Route: 058
  2. INSULIN GLARGINE [Suspect]
     Active Substance: INSULIN GLARGINE
     Indication: TYPE 2 DIABETES MELLITUS
     Dosage: 12 IU, QD
  3. INSULIN HUMAN REGULAR [Suspect]
     Active Substance: INSULIN HUMAN
     Indication: TYPE 2 DIABETES MELLITUS
     Dosage: 6-4-4 UNITS, TID

REACTIONS (6)
  - Blood insulin increased [Recovering/Resolving]
  - Anti-insulin antibody positive [Unknown]
  - Insulin autoimmune syndrome [Unknown]
  - Hyperglycaemia [Recovered/Resolved]
  - Insulin C-peptide increased [Recovering/Resolving]
  - Hypoglycaemia [Recovered/Resolved]
